FAERS Safety Report 5682226-2 (Version None)
Quarter: 2008Q1

REPORT INFORMATION
  Report Type: 
  Country: None (occurrence: None)
  Receive Date: 20080327
  Receipt Date: 20080318
  Transmission Date: 20080703
  Serious: Yes (Other)
  Sender: FDA-Public Use
  Company Number: CA-JNJFOC-20080100612

PATIENT
  Sex: Female
  Weight: 66 kg

DRUGS (9)
  1. REMICADE [Suspect]
     Route: 042
  2. REMICADE [Suspect]
     Route: 042
  3. REMICADE [Suspect]
     Route: 042
  4. REMICADE [Suspect]
     Indication: RHEUMATOID ARTHRITIS
     Route: 042
  5. DIOVAN [Concomitant]
     Dosage: DOSE: 40 MG (1/2) DAILY
     Route: 048
  6. TYLENOL (CAPLET) [Concomitant]
     Dosage: DOSE: ONE TWICE DAILY AS NEEDED
     Route: 048
  7. IBUPROFEN [Concomitant]
     Route: 048
  8. FELODIPINE [Concomitant]
     Route: 048
  9. NOVOTRIAMZIDE [Concomitant]
     Dosage: DOSE: 25 MG (1/2 TAB) DAILY
     Route: 048

REACTIONS (4)
  - BACK PAIN [None]
  - BREAST CANCER [None]
  - RASH PRURITIC [None]
  - STOMACH DISCOMFORT [None]
